FAERS Safety Report 9912151 (Version 1)
Quarter: 2014Q1

REPORT INFORMATION
  Report Type: Report from Study
  Country: US (occurrence: US)
  Receive Date: 20140220
  Receipt Date: 20140220
  Transmission Date: 20141002
  Serious: Yes (Death)
  Sender: FDA-Public Use
  Company Number: US-BRISTOL-MYERS SQUIBB COMPANY-20168431

PATIENT
  Sex: Male

DRUGS (10)
  1. ARIPIPRAZOLE [Suspect]
     Dates: start: 20130501, end: 20140107
  2. INSULIN ASPART [Concomitant]
  3. INSULIN GLARGINE [Concomitant]
     Route: 058
  4. ATORVASTATIN [Concomitant]
  5. CALCIUM [Concomitant]
  6. CHOLECALCIFEROL [Concomitant]
  7. OMEPRAZOLE [Concomitant]
  8. TRAZODONE HCL [Concomitant]
  9. POTASSIUM CHLORIDE [Concomitant]
     Route: 048
  10. CITALOPRAM [Concomitant]

REACTIONS (1)
  - Sudden death [Fatal]
